FAERS Safety Report 19500472 (Version 3)
Quarter: 2022Q4

REPORT INFORMATION
  Report Type: Report from Study
  Country: AT (occurrence: AT)
  Receive Date: 20210706
  Receipt Date: 20221027
  Transmission Date: 20230113
  Serious: Yes (Other)
  Sender: FDA-Public Use
  Company Number: AT-CELLTRION HEALTHCARE HUNGARY KFT-2020AT022577

PATIENT
  Age: 49 Year
  Sex: Female
  Weight: 55 kg

DRUGS (14)
  1. TRASTUZUMAB [Suspect]
     Active Substance: TRASTUZUMAB
     Indication: HER2 positive breast cancer
     Dosage: 330 MILLIGRAM, Q3WK
     Route: 040
     Dates: start: 20181113, end: 20190918
  2. TRASTUZUMAB [Suspect]
     Active Substance: TRASTUZUMAB
     Dosage: 330 MILLIGRAM, Q4WK
     Route: 040
     Dates: start: 20190918
  3. XGEVA [Suspect]
     Active Substance: DENOSUMAB
     Indication: HER2 positive breast cancer
     Dosage: 120 MG EVERY 4 WEEKS
     Route: 058
     Dates: start: 20190104
  4. PACLITAXEL [Suspect]
     Active Substance: PACLITAXEL
     Indication: HER2 positive breast cancer
     Dosage: 199 MILLIGRAM, QWK
     Route: 042
     Dates: start: 20181215
  5. PERTUZUMAB [Suspect]
     Active Substance: PERTUZUMAB
     Indication: HER2 positive breast cancer
     Dosage: 420 MILLIGRAM, Q3WK; MOST RECENT DOSE PRIOR TO THE EVENT: 18/SEP/2019
     Route: 040
     Dates: start: 20181113
  6. PERTUZUMAB [Suspect]
     Active Substance: PERTUZUMAB
     Dosage: 420 MILLIGRAM, Q4WK; MOST RECENT DOSE PRIOR TO THE EVENT: 13/NOV/2018
     Route: 040
     Dates: start: 20190918, end: 20210406
  7. PACLITAXEL [Suspect]
     Active Substance: PACLITAXEL
     Indication: HER2 positive breast cancer
     Dosage: 199 MILLIGRAM, QWK
     Route: 042
     Dates: start: 20181205, end: 20190515
  8. EXEMESTANE [Suspect]
     Active Substance: EXEMESTANE
     Indication: HER2 positive breast cancer
     Dosage: 25 MILLIGRAM, QD
     Route: 048
     Dates: start: 20181108
  9. OLEOVIT [DEXPANTHENOL;RETINOL] [Concomitant]
     Dosage: UNK
     Dates: start: 20181108
  10. DIAZEPAM [Concomitant]
     Active Substance: DIAZEPAM
     Dosage: 30 DOSAGE FORM (DROP (1/12 MILLILITRE))
     Dates: start: 20181108
  11. PANTOPRAZOLE [Concomitant]
     Active Substance: PANTOPRAZOLE
     Dosage: 40 MILLIGRAM, QD
     Dates: start: 20181108
  12. PREGABALIN [Concomitant]
     Active Substance: PREGABALIN
     Dosage: 75 MILLIGRAM, QD
     Dates: start: 20210104
  13. SUCRALAN [Concomitant]
     Indication: Stomatitis
     Dosage: 5 MILLIGRAM, Q12H
     Dates: start: 20181219, end: 20190104
  14. MYCOSTATIN [Concomitant]
     Active Substance: NYSTATIN
     Indication: Stomatitis
     Dosage: 5 MILLILITER
     Dates: start: 20181219, end: 20190104

REACTIONS (3)
  - Polyneuropathy [Recovered/Resolved]
  - Stomatitis [Recovered/Resolved]
  - Arthralgia [Recovered/Resolved]

NARRATIVE: CASE EVENT DATE: 20181207
